FAERS Safety Report 8831754 (Version 1)
Quarter: 2012Q4

REPORT INFORMATION
  Report Type: 
  Country: IE (occurrence: IE)
  Receive Date: 20121009
  Receipt Date: 20121009
  Transmission Date: 20130627
  Serious: Yes (Death, Hospitalization)
  Sender: FDA-Public Use
  Company Number: IE-AMGEN-IRLSP2012036718

PATIENT
  Age: 73 Year
  Sex: Male

DRUGS (6)
  1. ARANESP [Suspect]
     Indication: RENAL FAILURE CHRONIC
     Dosage: 40 mg, qmo
     Route: 058
     Dates: start: 20120111
  2. GAVISCON                           /00237601/ [Concomitant]
     Dosage: UNK
  3. ASPIRIN [Concomitant]
     Dosage: UNK
  4. NEXIUM                             /01479302/ [Concomitant]
     Dosage: UNK
  5. LIPOSTAT [Concomitant]
     Dosage: UNK
  6. ATACAND [Concomitant]
     Dosage: UNK

REACTIONS (2)
  - Death [Fatal]
  - Hypotension [Not Recovered/Not Resolved]
